FAERS Safety Report 7197172-5 (Version None)
Quarter: 2010Q4

REPORT INFORMATION
  Report Type: 
  Country: None (occurrence: None)
  Receive Date: 20101224
  Receipt Date: 20101221
  Transmission Date: 20110411
  Serious: Yes (Hospitalization)
  Sender: FDA-Public Use
  Company Number: CH-GILEAD-2010-0034674

PATIENT
  Age: 46 Year
  Sex: Female

DRUGS (4)
  1. VIREAD [Suspect]
     Indication: HIV INFECTION
     Route: 048
     Dates: start: 20030201, end: 20100701
  2. LAMIVUDINE [Concomitant]
     Route: 048
  3. ATAZANAVIR [Concomitant]
     Route: 048
  4. RITONAVIR [Concomitant]

REACTIONS (3)
  - BLOOD CREATININE INCREASED [None]
  - HYPOPHOSPHATAEMIA [None]
  - PROTEINURIA [None]
